FAERS Safety Report 4617187-8 (Version None)
Quarter: 2005Q1

REPORT INFORMATION
  Report Type: 
  Country: None (occurrence: None)
  Receive Date: 20050323
  Receipt Date: 20050314
  Transmission Date: 20050727
  Serious: Yes (Hospitalization)
  Sender: FDA-Public Use
  Company Number: 398012

PATIENT
  Age: 65 Year
  Sex: Female

DRUGS (2)
  1. CARVEDILOL [Suspect]
     Indication: ILL-DEFINED DISORDER
     Dosage: 25MG TWICE PER DAY
     Route: 048
     Dates: end: 20041124
  2. DIGOXIN [Suspect]
     Indication: ILL-DEFINED DISORDER
     Dosage: 1U PER DAY
     Route: 048
     Dates: end: 20041124

REACTIONS (3)
  - ATRIOVENTRICULAR BLOCK [None]
  - DRUG INTERACTION [None]
  - SYNCOPE [None]
